FAERS Safety Report 7808039-0 (Version None)
Quarter: 2011Q4

REPORT INFORMATION
  Report Type: 
  Country: None (occurrence: None)
  Receive Date: 20111011
  Receipt Date: 20110927
  Transmission Date: 20120403
  Serious: Yes (Death, Hospitalization)
  Sender: FDA-Public Use
  Company Number: US-WATSON-2011-15529

PATIENT
  Age: 74 Year
  Sex: Male

DRUGS (2)
  1. GELNIQUE [Suspect]
     Indication: URINARY INCONTINENCE
     Dosage: USED ONLY 2 PACKETS TOTAL (ONE PACKET DAILY) IN JULY OR AUGUST 2010
     Route: 061
     Dates: start: 20100701
  2. PLAVIX [Suspect]
     Indication: PRODUCT USED FOR UNKNOWN INDICATION
     Dosage: DAILY
     Route: 048
     Dates: end: 20110101

REACTIONS (6)
  - ANEURYSM [None]
  - HAEMOPTYSIS [None]
  - HAEMORRHAGE [None]
  - HYPOTENSION [None]
  - URINARY TRACT INFECTION [None]
  - VOMITING [None]
